FAERS Safety Report 17970994 (Version 1)
Quarter: 2020Q3

REPORT INFORMATION
  Report Type: Spontaneous
  Country: IL (occurrence: IL)
  Receive Date: 20200702
  Receipt Date: 20200702
  Transmission Date: 20201103
  Serious: Yes (Other)
  Sender: FDA-Public Use
  Company Number: IL-TEVA-2020-IL-1792749

PATIENT
  Age: 74 Year
  Sex: Female

DRUGS (1)
  1. CARBOPLATIN TEVA [Suspect]
     Active Substance: CARBOPLATIN
     Dosage: 560MG ACCORDING TO PROTOCOL
     Route: 065

REACTIONS (4)
  - Nausea [Unknown]
  - Vomiting [Unknown]
  - Ocular hyperaemia [Unknown]
  - Dyspnoea [Unknown]
